FAERS Safety Report 7791524-8 (Version None)
Quarter: 2011Q3

REPORT INFORMATION
  Report Type: 
  Country: None (occurrence: None)
  Receive Date: 20110930
  Receipt Date: 20110930
  Transmission Date: 20111222
  Serious: Yes (Life-Threatening, Hospitalization, Disabling, Other)
  Sender: FDA-Public Use
  Company Number: None

PATIENT
  Age: 57 Year
  Sex: Male
  Weight: 80.7403 kg

DRUGS (1)
  1. SULFAMETHOXAZOLE AND TRIMETHOPRIM [Suspect]
     Indication: INFECTION
     Dosage: 800/150 2 A DAY 12 HRS
     Dates: start: 20101021

REACTIONS (3)
  - PAIN [None]
  - CHEMICAL INJURY [None]
  - BURNS SECOND DEGREE [None]
